FAERS Safety Report 5071675-1 (Version None)
Quarter: 2006Q3

REPORT INFORMATION
  Report Type: 
  Country: None (occurrence: None)
  Receive Date: 20060804
  Receipt Date: 20060612
  Transmission Date: 20061208
  Serious: Yes (Other)
  Sender: FDA-Public Use
  Company Number: 2006UW12539

PATIENT
  Age: 74 Year
  Sex: Female
  Weight: 56.4 kg

DRUGS (11)
  1. CRESTOR [Suspect]
     Indication: LIPIDS INCREASED
     Route: 048
     Dates: start: 20060531
  2. LANOXIN [Concomitant]
     Route: 048
     Dates: end: 20060602
  3. COREG [Concomitant]
     Indication: CARDIAC FAILURE
     Route: 048
     Dates: start: 20010118
  4. MONOPRIL [Concomitant]
     Indication: CARDIAC FAILURE
     Route: 048
     Dates: start: 20040526
  5. ALDACTONE [Concomitant]
     Indication: CARDIAC FAILURE
     Dosage: ALDACTONE 25 MG TABS 1/2  PO QOD
     Route: 048
     Dates: start: 20041217
  6. FEMARA [Concomitant]
     Route: 048
  7. FORMETA [Concomitant]
     Dosage: INJECTIONS EVERY OTHER MONTH
     Route: 042
  8. VALIUM [Concomitant]
     Route: 048
  9. ASPIRIN [Concomitant]
     Indication: CARDIOVASCULAR DISORDER
     Dosage: CRUSHED IN FOOD
     Route: 048
  10. LESCOL XL [Concomitant]
     Indication: LIPIDS INCREASED
     Route: 048
     Dates: start: 20030101, end: 20060501
  11. TORSEMIDE [Concomitant]
     Indication: DIURETIC THERAPY
     Route: 048

REACTIONS (1)
  - BLOOD PRESSURE FLUCTUATION [None]
